FAERS Safety Report 4617015-0 (Version None)
Quarter: 2005Q1

REPORT INFORMATION
  Report Type: 
  Country: None (occurrence: None)
  Receive Date: 20050318
  Receipt Date: 20050308
  Transmission Date: 20050727
  Serious: Yes (Hospitalization)
  Sender: FDA-Public Use
  Company Number: FRWYE489909MAR05

PATIENT
  Age: 31 Year
  Sex: Female

DRUGS (2)
  1. LEVONORGESTREL [Suspect]
     Indication: CONTRACEPTION
     Dosage: 1 TABLET 1X PER 1 DAY, ORAL
     Route: 048
  2. ORAL ANTICOAGULANT NOS (ORAL ANTICOAGULANT NOS) [Concomitant]

REACTIONS (1)
  - PULMONARY EMBOLISM [None]
